FAERS Safety Report 20183969 (Version 1)
Quarter: 2021Q4

REPORT INFORMATION
  Report Type: Spontaneous
  Country: US (occurrence: US)
  Receive Date: 20211214
  Receipt Date: 20211214
  Transmission Date: 20220303
  Serious: No
  Sender: FDA-Public Use
  Company Number: US-ABBVIE-20K-163-3686471-00

PATIENT
  Age: 68 Year
  Sex: Male
  Weight: 83.082 kg

DRUGS (3)
  1. IMBRUVICA [Suspect]
     Active Substance: IBRUTINIB
     Indication: Mantle cell lymphoma
     Route: 048
     Dates: start: 201911, end: 20210110
  2. FINASTERIDE [Concomitant]
     Active Substance: FINASTERIDE
     Indication: Prostate cancer
     Route: 048
  3. SIMVASTATIN [Concomitant]
     Active Substance: SIMVASTATIN
     Indication: Blood cholesterol abnormal
     Route: 065
     Dates: start: 2011

REACTIONS (7)
  - Cardiac disorder [Recovered/Resolved]
  - Cardiac disorder [Unknown]
  - Blood pressure fluctuation [Not Recovered/Not Resolved]
  - Palpitations [Recovered/Resolved]
  - Blood pressure systolic increased [Recovered/Resolved]
  - Palpitations [Not Recovered/Not Resolved]
  - Blood pressure systolic increased [Not Recovered/Not Resolved]

NARRATIVE: CASE EVENT DATE: 20201101
